FAERS Safety Report 5639775-2 (Version None)
Quarter: 2008Q1

REPORT INFORMATION
  Report Type: 
  Country: None (occurrence: None)
  Receive Date: 20080225
  Receipt Date: 20080225
  Transmission Date: 20080703
  Serious: Yes (Life-Threatening, Hospitalization, Other)
  Sender: FDA-Public Use
  Company Number: None

PATIENT
  Age: 32 Year
  Sex: Male
  Weight: 86.1834 kg

DRUGS (2)
  1. BUPROPION 300MG TEVA [Suspect]
     Indication: DEPRESSION
     Dosage: 300MG 1 TABLET EVERY DAY PO
     Route: 048
  2. WELLBUTRIN XL [Suspect]
     Indication: DEPRESSION
     Dosage: 150MG 1 TABLET EVERY DAY PO
     Route: 048
     Dates: start: 20080224, end: 20080224

REACTIONS (2)
  - DRUG DISPENSING ERROR [None]
  - MEDICATION ERROR [None]
